FAERS Safety Report 9042982 (Version 1)
Quarter: 2013Q1

REPORT INFORMATION
  Report Type: Report from Study
  Country: PR (occurrence: PR)
  Receive Date: 20130129
  Receipt Date: 20130129
  Transmission Date: 20140127
  Serious: No
  Sender: FDA-Public Use
  Company Number: PR-ABBOTT-12P-131-0889359-00

PATIENT
  Age: 36 None
  Sex: Female
  Weight: 57.66 kg

DRUGS (5)
  1. HUMIRA 40 MG/0.8 ML PEN [Suspect]
     Indication: RHEUMATOID ARTHRITIS
     Route: 058
     Dates: start: 201105
  2. ULTRACET [Concomitant]
     Indication: CARPAL TUNNEL SYNDROME
     Route: 048
     Dates: start: 2001
  3. NAPROXEN [Concomitant]
     Indication: CARPAL TUNNEL SYNDROME
     Route: 048
     Dates: start: 2001
  4. FLEXERIL [Concomitant]
     Indication: CARPAL TUNNEL SYNDROME
     Route: 048
     Dates: start: 2001
  5. PREDNISONE [Concomitant]
     Indication: CARPAL TUNNEL SYNDROME
     Route: 048
     Dates: start: 2001

REACTIONS (6)
  - Abdominal pain [Unknown]
  - Pyrexia [Unknown]
  - Pain [Unknown]
  - Asthenia [Recovering/Resolving]
  - Oropharyngeal pain [Unknown]
  - Injection site pain [Unknown]
